FAERS Safety Report 8924870 (Version 1)
Quarter: 2012Q4

REPORT INFORMATION
  Report Type: Report from Study
  Country: FR (occurrence: FR)
  Receive Date: 20121126
  Receipt Date: 20121126
  Transmission Date: 20130627
  Serious: Yes (Death, Hospitalization)
  Sender: FDA-Public Use
  Company Number: FR-ROCHE-48372

PATIENT
  Age: 91 Year
  Sex: Female

DRUGS (4)
  1. CEFTRIAXONE [Suspect]
     Indication: PNEUMONIA
     Route: 030
     Dates: start: 19950624, end: 19950628
  2. CEFTRIAXONE [Suspect]
     Indication: PNEUMONIA
     Route: 042
     Dates: start: 19950619, end: 19950623
  3. LASILIX [Concomitant]
     Indication: RENAL FAILURE
     Route: 048
  4. LOVENOX [Concomitant]
     Indication: PHLEBITIS
     Route: 042

REACTIONS (2)
  - Renal failure [Fatal]
  - Anuria [Unknown]
